FAERS Safety Report 6767889-2 (Version None)
Quarter: 2010Q2

REPORT INFORMATION
  Report Type: 
  Country: None (occurrence: None)
  Receive Date: 20100614
  Receipt Date: 20100604
  Transmission Date: 20101027
  Serious: Yes (Other)
  Sender: FDA-Public Use
  Company Number: AU-SANOFI-AVENTIS-2010SA032262

PATIENT
  Age: 62 Year
  Sex: Female

DRUGS (5)
  1. ARAVA [Suspect]
     Indication: RHEUMATOID ARTHRITIS
     Dates: start: 20100301
  2. PLAQUENIL [Concomitant]
  3. METHOTREXATE [Concomitant]
  4. SULFASALAZINE [Concomitant]
  5. PREDNISONE [Concomitant]
     Indication: RHEUMATOID ARTHRITIS

REACTIONS (1)
  - RED BLOOD CELL SEDIMENTATION RATE ABNORMAL [None]
